FAERS Safety Report 4417825-9 (Version None)
Quarter: 2004Q3

REPORT INFORMATION
  Report Type: 
  Country: None (occurrence: None)
  Receive Date: 20040807
  Receipt Date: 20040629
  Transmission Date: 20050211
  Serious: Yes (Life-Threatening, Hospitalization)
  Sender: FDA-Public Use
  Company Number: DE-MERCK-0406DEU00186

PATIENT
  Age: 89 Year
  Sex: Female
  Weight: 61 kg

DRUGS (6)
  1. ASPIRIN [Suspect]
     Route: 048
     Dates: start: 20010101, end: 20040602
  2. FUROSEMIDE [Concomitant]
     Route: 048
     Dates: start: 20020101
  3. METOPROLOL SUCCINATE [Concomitant]
     Route: 048
     Dates: start: 20000101
  4. MOXONIDINE [Concomitant]
     Route: 048
     Dates: start: 20000101
  5. VIOXX [Suspect]
     Indication: SPONDYLOSIS
     Route: 048
     Dates: start: 20020319, end: 20040602
  6. VALSARTAN [Concomitant]
     Route: 048
     Dates: start: 20000101

REACTIONS (5)
  - ANGINA PECTORIS [None]
  - DYSPNOEA EXERTIONAL [None]
  - HAEMOGLOBIN DECREASED [None]
  - MELAENA [None]
  - UPPER GASTROINTESTINAL HAEMORRHAGE [None]
